FAERS Safety Report 8438438-8 (Version None)
Quarter: 2012Q2

REPORT INFORMATION
  Report Type: 
  Country: None (occurrence: None)
  Receive Date: 20120614
  Receipt Date: 20120607
  Transmission Date: 20120825
  Serious: Yes (Hospitalization, Other)
  Sender: FDA-Public Use
  Company Number: US-UCBSA-041435

PATIENT
  Age: 28 Year
  Sex: Female
  Weight: 73 kg

DRUGS (18)
  1. ABILIFY [Concomitant]
     Indication: DEPRESSION
     Dosage: DAILY DOSE: 2 MG
     Route: 048
     Dates: start: 20101111
  2. CLONAZEPAM [Concomitant]
     Indication: ANXIETY
     Dosage: 1 MG AT BEDTIME
     Route: 048
  3. CIMZIA [Suspect]
     Indication: CROHN'S DISEASE
     Route: 058
     Dates: start: 20100303
  4. REMICADE [Concomitant]
     Dosage: 5 MG/KG
     Route: 042
     Dates: start: 20110615
  5. ACETAMINOPHEN [Concomitant]
  6. PREDNISONE TAB [Concomitant]
     Indication: CROHN'S DISEASE
     Dates: start: 20100201, end: 20100401
  7. HYDROCODONE BITARTRATE + ACETAMINOPHEN [Concomitant]
     Dosage: 10-500 MG 1-2 TABLET
  8. CLONIDINE EPID [Concomitant]
     Indication: BLOOD PRESSURE
     Route: 008
     Dates: start: 20100312
  9. MULTI-VITAMINS [Concomitant]
     Indication: VITAMIN SUPPLEMENTATION
     Dosage: 1 PO
     Route: 048
  10. PREDNISONE TAB [Concomitant]
     Dosage: DAILY DOSE: 30 MG
     Dates: start: 20111123, end: 20120201
  11. PREDNISONE TAB [Concomitant]
     Dates: start: 20110101, end: 20120401
  12. OXYCODONE HCL [Concomitant]
     Dosage: 5 MG-325 MG ONCE EVERY 4 HOURS
     Route: 048
     Dates: start: 20100701
  13. EXTRA STRENGTH TYLENOL [Concomitant]
     Indication: PAIN
     Dosage: 1-2 AS NEEDED, 1 G PRN
     Route: 048
  14. ACETAMINOPHEN [Concomitant]
     Dosage: 1000 MG
     Dates: start: 20100312, end: 20100319
  15. PROZAC [Concomitant]
     Indication: DEPRESSION
     Dosage: DAILY DOSE: 40 MG
     Route: 048
  16. PROZAC [Concomitant]
     Dosage: DAILY DOSE: 60 MG
     Route: 048
  17. REMICADE [Concomitant]
     Indication: CROHN'S DISEASE
     Dosage: 5MG/KG
     Route: 042
     Dates: start: 20110601, end: 20120201
  18. DIATRIZOATE MEGLUMINE [Concomitant]

REACTIONS (3)
  - ABDOMINAL PAIN [None]
  - VAGINAL HAEMORRHAGE [None]
  - PREGNANCY [None]
